FAERS Safety Report 18079772 (Version 7)
Quarter: 2021Q4

REPORT INFORMATION
  Report Type: Spontaneous
  Country: CA (occurrence: CA)
  Receive Date: 20200728
  Receipt Date: 20211228
  Transmission Date: 20220303
  Serious: Yes (Other)
  Sender: FDA-Public Use
  Company Number: CA-PFIZER INC-2020261299

PATIENT
  Age: 61 Year
  Sex: Female
  Weight: 128 kg

DRUGS (4)
  1. DILANTIN [Suspect]
     Active Substance: PHENYTOIN
     Indication: Epilepsy
     Dosage: 100 MG, 3X/DAY
     Dates: start: 20200720
  2. DILANTIN [Suspect]
     Active Substance: PHENYTOIN
     Dosage: 30 MG
  3. DILANTIN [Suspect]
     Active Substance: PHENYTOIN
     Dosage: 380 MG, DAILY
     Route: 048
     Dates: start: 20211013
  4. PRIMIDONE [Concomitant]
     Active Substance: PRIMIDONE
     Indication: Epilepsy
     Dosage: 750

REACTIONS (27)
  - Seizure [Not Recovered/Not Resolved]
  - Suicidal ideation [Unknown]
  - Weight decreased [Unknown]
  - Cardiac flutter [Unknown]
  - Noninfective encephalitis [Unknown]
  - Drug level decreased [Unknown]
  - Drug ineffective [Unknown]
  - Flushing [Not Recovered/Not Resolved]
  - Photosensitivity reaction [Unknown]
  - Somnolence [Unknown]
  - Nausea [Unknown]
  - Cardiac disorder [Not Recovered/Not Resolved]
  - Drug hypersensitivity [Unknown]
  - Toxicity to various agents [Unknown]
  - Dysstasia [Unknown]
  - Product formulation issue [Unknown]
  - Gastrointestinal disorder [Unknown]
  - Coagulopathy [Unknown]
  - Blood glucose decreased [Unknown]
  - Pyrexia [Unknown]
  - Mood swings [Unknown]
  - Gastroenteritis [Unknown]
  - Faeces discoloured [Unknown]
  - Depressed mood [Not Recovered/Not Resolved]
  - Dizziness [Unknown]
  - Tinnitus [Unknown]
  - Swelling [Unknown]

NARRATIVE: CASE EVENT DATE: 20200714
